FAERS Safety Report 10438739 (Version 2)
Quarter: 2014Q3

REPORT INFORMATION
  Report Type: Spontaneous
  Country: US (occurrence: US)
  Receive Date: 20140908
  Receipt Date: 20140923
  Transmission Date: 20150326
  Serious: Yes (Other)
  Sender: FDA-Public Use
  Company Number: US-PERRIGO-14US008764

PATIENT
  Age: 87 Year
  Sex: Male
  Weight: 62.59 kg

DRUGS (4)
  1. DOCUSATE SODIUM 100 MG 486 [Suspect]
     Active Substance: DOCUSATE SODIUM
     Indication: FAECES HARD
     Dosage: 100 MG, SINGLE
     Route: 048
     Dates: start: 20140828, end: 20140828
  2. GAS-X [Concomitant]
     Active Substance: DIMETHICONE
     Indication: FLATULENCE
     Dosage: UNKNOWN, PRN
     Route: 065
     Dates: start: 2012
  3. GAS-X [Concomitant]
     Active Substance: DIMETHICONE
     Indication: DYSPEPSIA
  4. DOCUSATE SODIUM 100 MG 486 [Suspect]
     Active Substance: DOCUSATE SODIUM
     Dosage: 100 MG, PRN
     Route: 048
     Dates: start: 2011, end: 20140827

REACTIONS (5)
  - Dyspnoea [Recovered/Resolved]
  - Throat irritation [Recovered/Resolved]
  - Productive cough [Recovered/Resolved]
  - Foreign body [Recovered/Resolved]
  - Oesophageal stenosis [Recovered/Resolved]

NARRATIVE: CASE EVENT DATE: 20140828
